FAERS Safety Report 5368654-3 (Version None)
Quarter: 2007Q2

REPORT INFORMATION
  Report Type: 
  Country: None (occurrence: None)
  Receive Date: 20070621
  Receipt Date: 20070621
  Transmission Date: 20071010
  Serious: Yes (Hospitalization, Disabling)
  Sender: FDA-Public Use
  Company Number: None

PATIENT
  Age: 39 Year
  Sex: Male
  Weight: 94.3482 kg

DRUGS (4)
  1. CYMBALTA [Suspect]
     Indication: BACK INJURY
     Dosage: DAILY PO
     Route: 048
     Dates: start: 20070501, end: 20070610
  2. CYMBALTA [Suspect]
     Indication: BACK PAIN
     Dosage: DAILY PO
     Route: 048
     Dates: start: 20070501, end: 20070610
  3. CYMBALTA [Suspect]
     Indication: DEPRESSION
     Dosage: DAILY PO
     Route: 048
     Dates: start: 20070501, end: 20070610
  4. CYMBALTA [Suspect]
     Indication: SURGERY
     Dosage: DAILY PO
     Route: 048
     Dates: start: 20070501, end: 20070610

REACTIONS (3)
  - BLOOD PRESSURE INCREASED [None]
  - CHEST PAIN [None]
  - REFUSAL OF TREATMENT BY PATIENT [None]
